FAERS Safety Report 20675500 (Version 3)
Quarter: 2022Q2

REPORT INFORMATION
  Report Type: Report from Study
  Country: US (occurrence: US)
  Receive Date: 20220405
  Receipt Date: 20220503
  Transmission Date: 20220721
  Serious: Yes (Other)
  Sender: FDA-Public Use
  Company Number: US-Ipsen Biopharmaceuticals, Inc.-2022-06384

PATIENT
  Age: 77 Year
  Sex: Female

DRUGS (13)
  1. XERMELO [Suspect]
     Active Substance: TELOTRISTAT ETHYL
     Indication: Carcinoid syndrome
     Dosage: SOMETIME BID-TID DEPENDING ON IF EATS 3 MEALS/DAY
     Route: 065
     Dates: start: 20211227
  2. SOMATULINE DEPOT [Suspect]
     Active Substance: LANREOTIDE ACETATE
     Indication: Product used for unknown indication
     Dosage: DOSE: UNKNOWN
     Route: 065
  3. VENLAFAXINE [Suspect]
     Active Substance: VENLAFAXINE HYDROCHLORIDE
     Indication: Flushing
     Route: 065
  4. HYDROCHLOROTHIAZIDE\LOSARTAN [Concomitant]
     Active Substance: HYDROCHLOROTHIAZIDE\LOSARTAN
     Dosage: 50/125 MG
  5. ATENOLOL [Concomitant]
     Active Substance: ATENOLOL
  6. ROSUVASTATIN [Concomitant]
     Active Substance: ROSUVASTATIN
  7. CALCIUM [Concomitant]
     Active Substance: CALCIUM
  8. VITAMIN D3 [Concomitant]
     Active Substance: CHOLECALCIFEROL
  9. CHLORHEXIDINE GLUCONATE [Concomitant]
     Active Substance: CHLORHEXIDINE GLUCONATE
     Dosage: HS
  10. ASPIRIN [Concomitant]
     Active Substance: ASPIRIN
  11. NEURIVAS [Concomitant]
  12. AMLODIPINE [Concomitant]
     Active Substance: AMLODIPINE BESYLATE
  13. VITAMINS [Concomitant]
     Active Substance: VITAMINS
     Dosage: OVER 50 PLUS DAILY

REACTIONS (10)
  - Arrhythmia [Unknown]
  - Urinary tract infection [Recovered/Resolved]
  - Insomnia [Not Recovered/Not Resolved]
  - Flushing [Not Recovered/Not Resolved]
  - Abdominal pain [Not Recovered/Not Resolved]
  - Gastroenteritis viral [Recovered/Resolved]
  - Blood glucose increased [Unknown]
  - Blood chloride decreased [Unknown]
  - Blood triglycerides increased [Unknown]
  - Palpitations [Unknown]

NARRATIVE: CASE EVENT DATE: 20220310
